FAERS Safety Report 16892468 (Version 1)
Quarter: 2019Q4

REPORT INFORMATION
  Report Type: Report from Study
  Country: US (occurrence: US)
  Receive Date: 20191007
  Receipt Date: 20191007
  Transmission Date: 20200122
  Serious: Yes (Other)
  Sender: FDA-Public Use
  Company Number: US-GILEAD-2019-0402106

PATIENT
  Age: 34 Year
  Sex: Male

DRUGS (1)
  1. AZTREONAM LYSINE [Suspect]
     Active Substance: AZTREONAM LYSINE
     Indication: CYSTIC FIBROSIS
     Dosage: 75 MG TAKEN THREE TIMES DAILY FOR 28 DAYS ON AND 28 DAYS OFF.
     Dates: start: 2010

REACTIONS (2)
  - Lung transplant [Unknown]
  - Lung transplant [Unknown]

NARRATIVE: CASE EVENT DATE: 2014
